FAERS Safety Report 5287134-7 (Version None)
Quarter: 2007Q1

REPORT INFORMATION
  Report Type: 
  Country: None (occurrence: None)
  Receive Date: 20070116
  Receipt Date: 20060917
  Transmission Date: 20070707
  Serious: No
  Sender: FDA-Public Use
  Company Number: 2006SP003334

PATIENT
  Age: 82 Year
  Sex: Female
  Weight: 57.1532 kg

DRUGS (7)
  1. LUNESTA [Suspect]
     Indication: INSOMNIA
     Dosage: 2 MG; HS; ORAL
     Route: 048
     Dates: start: 20060101
  2. LOTREL [Concomitant]
  3. COREG [Concomitant]
  4. AVAPRO [Concomitant]
  5. SIMVASTATIN [Concomitant]
  6. METOLAZONE [Concomitant]
  7. VITAMIN CAP [Concomitant]

REACTIONS (2)
  - DRUG INEFFECTIVE [None]
  - MIDDLE INSOMNIA [None]
